FAERS Safety Report 13831447 (Version 1)
Quarter: 2017Q3

REPORT INFORMATION
  Report Type: Report from Study
  Country: FR (occurrence: FR)
  Receive Date: 20170803
  Receipt Date: 20170803
  Transmission Date: 20171127
  Serious: Yes (Hospitalization, Other)
  Sender: FDA-Public Use
  Company Number: FR-BRISTOL-MYERS SQUIBB COMPANY-BMS-2017-066615

PATIENT
  Sex: Male
  Weight: 70 kg

DRUGS (2)
  1. ENTECAVIR. [Suspect]
     Active Substance: ENTECAVIR
     Indication: HEPATITIS B VIRUS TEST
     Dosage: 0.5 MG, QD
     Route: 065
     Dates: start: 20110913
  2. METHADONE [Concomitant]
     Active Substance: METHADONE HYDROCHLORIDE
     Indication: PRODUCT USED FOR UNKNOWN INDICATION
     Dosage: 120 MG, QD
     Route: 065
     Dates: start: 201101

REACTIONS (3)
  - Vascular operation [Unknown]
  - Vascular injury [Recovering/Resolving]
  - Fasciotomy [Unknown]
